FAERS Safety Report 24388374 (Version 1)
Quarter: 2024Q4

REPORT INFORMATION
  Report Type: Spontaneous
  Country: US (occurrence: US)
  Receive Date: 20241002
  Receipt Date: 20241002
  Transmission Date: 20250115
  Serious: No
  Sender: SANOFI AVENTIS
  Company Number: US-SA-2024SA276307

PATIENT
  Sex: Female

DRUGS (1)
  1. DUPIXENT [Suspect]
     Active Substance: DUPILUMAB
     Indication: Necrobiosis lipoidica diabeticorum
     Dosage: 300 MG, QOW
     Route: 058
     Dates: start: 202306

REACTIONS (1)
  - Drug ineffective for unapproved indication [Unknown]
